FAERS Safety Report 23965414 (Version 1)
Quarter: 2024Q2

REPORT INFORMATION
  Report Type: Spontaneous
  Country: DE (occurrence: DE)
  Receive Date: 20240612
  Receipt Date: 20240612
  Transmission Date: 20240716
  Serious: Yes (Other)
  Sender: FDA-Public Use
  Company Number: DE-UCBSA-2024029105

PATIENT
  Age: 34 Year
  Sex: Female

DRUGS (2)
  1. LEVETIRACETAM [Suspect]
     Active Substance: LEVETIRACETAM
     Indication: Generalised tonic-clonic seizure
     Dosage: 500 MILLIGRAM, 2X/DAY (BID)
     Dates: start: 2022
  2. LEVETIRACETAM [Suspect]
     Active Substance: LEVETIRACETAM
     Dosage: 1000 MILLIGRAM, 2X/DAY (BID)

REACTIONS (12)
  - Seizure [Unknown]
  - Flashback [Unknown]
  - Epileptic aura [Unknown]
  - Irritability [Unknown]
  - Depression [Unknown]
  - Memory impairment [Unknown]
  - Palpitations [Unknown]
  - Piloerection [Unknown]
  - Breast engorgement [Unknown]
  - Dizziness [Unknown]
  - Feeling abnormal [Unknown]
  - Maternal exposure during breast feeding [Unknown]

NARRATIVE: CASE EVENT DATE: 20220101
